FAERS Safety Report 19146050 (Version 4)
Quarter: 2021Q4

REPORT INFORMATION
  Report Type: Spontaneous
  Country: NL (occurrence: NL)
  Receive Date: 20210416
  Receipt Date: 20211122
  Transmission Date: 20220304
  Serious: Yes (Hospitalization)
  Sender: FDA-Public Use
  Company Number: NL-CELGENE-NLD-20210305731

PATIENT
  Age: 63 Year
  Sex: Female

DRUGS (20)
  1. LENALIDOMIDE [Suspect]
     Active Substance: LENALIDOMIDE
     Indication: Plasma cell myeloma
     Dosage: 25 MILLIGRAM
     Route: 048
     Dates: start: 20210304, end: 20210318
  2. ISATUXIMAB [Suspect]
     Active Substance: ISATUXIMAB
     Indication: Plasma cell myeloma
     Dosage: 100 MG / 5 ML
     Route: 065
     Dates: start: 20210304
  3. ISATUXIMAB [Suspect]
     Active Substance: ISATUXIMAB
     Dosage: 110 AND 39 MG ACCORDING TO PROTOCOL.?500 MG / 25 ML
     Route: 065
     Dates: start: 20210314, end: 20210318
  4. CARFILZOMIB [Suspect]
     Active Substance: CARFILZOMIB
     Indication: Plasma cell myeloma
     Dosage: 110 AND 39 MG ACCORDING TO PROTOCOL
     Route: 065
     Dates: start: 20210304, end: 20210318
  5. DEXAMETHASONE [Suspect]
     Active Substance: DEXAMETHASONE
     Indication: Plasma cell myeloma
     Route: 065
     Dates: start: 20210304, end: 20210318
  6. FLUOXETINE [Concomitant]
     Active Substance: FLUOXETINE HYDROCHLORIDE
     Indication: Infusion related reaction
     Route: 065
     Dates: start: 20210406
  7. OXAZEPAM [Concomitant]
     Active Substance: OXAZEPAM
     Indication: Depression
     Route: 065
     Dates: start: 20210220, end: 20210420
  8. OXAZEPAM [Concomitant]
     Active Substance: OXAZEPAM
     Indication: Sleep apnoea syndrome
  9. LORAZEPAM [Concomitant]
     Active Substance: LORAZEPAM
     Indication: Infusion related reaction
     Route: 065
     Dates: start: 20210420
  10. ONDANSETRON [Concomitant]
     Active Substance: ONDANSETRON
     Indication: Mucosal inflammation
     Route: 065
     Dates: start: 20210901, end: 20210922
  11. APREPITANT [Concomitant]
     Active Substance: APREPITANT
     Indication: Prophylaxis
     Route: 065
     Dates: start: 20210901, end: 20210905
  12. METOCLOPRAMIDE [Concomitant]
     Active Substance: METOCLOPRAMIDE
     Indication: Mucosal inflammation
     Route: 065
     Dates: start: 20210906
  13. FLUCONAZOLE [Concomitant]
     Active Substance: FLUCONAZOLE
     Indication: Prophylaxis
     Route: 065
     Dates: start: 20210906, end: 20210920
  14. CIPROFLOXACIN [Concomitant]
     Active Substance: CIPROFLOXACIN
     Indication: Prophylaxis
     Route: 065
     Dates: start: 20210906, end: 20210918
  15. GENTAMICIN [Concomitant]
     Active Substance: GENTAMICIN
     Indication: Infection
     Route: 065
     Dates: start: 20210914, end: 20210915
  16. PIPERACILLIN AND TAZOBACTAM [Concomitant]
     Active Substance: PIPERACILLIN SODIUM\TAZOBACTAM SODIUM
     Indication: Infection
     Route: 065
     Dates: start: 20210914, end: 20210915
  17. MEROPENEM [Concomitant]
     Active Substance: MEROPENEM
     Indication: Infection
     Route: 065
     Dates: start: 20210914, end: 20210921
  18. VALACYCLOVIR HYDROCHLORIDE [Concomitant]
     Active Substance: VALACYCLOVIR HYDROCHLORIDE
     Indication: Prophylaxis
     Route: 065
     Dates: start: 20210920
  19. Antagel [Concomitant]
     Indication: Mucosal inflammation
     Route: 065
     Dates: start: 20210921
  20. LOPERAMIDE [Concomitant]
     Active Substance: LOPERAMIDE
     Indication: Mucosal inflammation
     Route: 065
     Dates: start: 20210913

REACTIONS (1)
  - Infusion related reaction [Recovered/Resolved]

NARRATIVE: CASE EVENT DATE: 20210318
